FAERS Safety Report 10540057 (Version 1)
Quarter: 2014Q4

REPORT INFORMATION
  Report Type: Spontaneous
  Country: US (occurrence: US)
  Receive Date: 20141024
  Receipt Date: 20141024
  Transmission Date: 20150529
  Serious: No
  Sender: FDA-Public Use
  Company Number: US-009507513-1410USA010273

PATIENT
  Sex: Male

DRUGS (1)
  1. DULERA [Suspect]
     Active Substance: FORMOTEROL FUMARATE DIHYDRATE\MOMETASONE FUROATE
     Indication: ASTHMA
     Dosage: 200 MCG/ 2 PUFFS TWICE DAILY
     Route: 055
     Dates: start: 201310

REACTIONS (2)
  - Feeling abnormal [Not Recovered/Not Resolved]
  - Dysphonia [Not Recovered/Not Resolved]
